FAERS Safety Report 16938240 (Version 1)
Quarter: 2019Q4

REPORT INFORMATION
  Report Type: Other
  Country: US (occurrence: US)
  Receive Date: 20191019
  Receipt Date: 20191019
  Transmission Date: 20200122
  Serious: Yes (Hospitalization)
  Sender: FDA-Public Use
  Company Number: US-APTAPHARMA INC.-2075847

PATIENT
  Age: 37 Year
  Sex: Female

DRUGS (3)
  1. ACETAMINOPHEN. [Concomitant]
     Active Substance: ACETAMINOPHEN
  2. KETOROLAC TROMETHAMINE. [Concomitant]
     Active Substance: KETOROLAC TROMETHAMINE
     Route: 042
  3. IBUPROFEN ORAL [Suspect]
     Active Substance: IBUPROFEN
     Indication: PELVIC CONGESTION
     Route: 065

REACTIONS (2)
  - Decreased appetite [Unknown]
  - Renal infarct [Recovering/Resolving]
